FAERS Safety Report 5018791-8 (Version None)
Quarter: 2006Q2

REPORT INFORMATION
  Report Type: 
  Country: None (occurrence: None)
  Receive Date: 20060531
  Receipt Date: 20060517
  Transmission Date: 20061013
  Serious: Yes (Hospitalization, Other)
  Sender: FDA-Public Use
  Company Number: US-2005-027471

PATIENT
  Age: 45 Year
  Sex: Male
  Weight: 68 kg

DRUGS (8)
  1. BETASERON [Suspect]
     Indication: PRIMARY PROGRESSIVE MULTIPLE SCLEROSIS
     Dosage: 8 MIU, EVERY 2D, SUBCUTANEOUS
     Route: 058
     Dates: start: 20040615, end: 20051228
  2. NEURONTIN [Concomitant]
  3. LEXAPRO [Concomitant]
  4. TEGRETOL [Concomitant]
  5. DANTRIUM [Concomitant]
  6. KLONOPIN [Concomitant]
  7. AMANTADINE HCL [Concomitant]
  8. FLOMAX [Concomitant]

REACTIONS (12)
  - ACTIVATED PARTIAL THROMBOPLASTIN TIME SHORTENED [None]
  - BEDRIDDEN [None]
  - CREATINE PHOSPHOKINASE DECREASED [None]
  - DRUG INEFFECTIVE [None]
  - ECONOMIC PROBLEM [None]
  - FATIGUE [None]
  - LUNG INFILTRATION [None]
  - NAUSEA [None]
  - PHLEBITIS [None]
  - PULMONARY EMBOLISM [None]
  - THERAPEUTIC RESPONSE DECREASED [None]
  - THROMBOSIS [None]
